FAERS Safety Report 19955043 (Version 3)
Quarter: 2021Q4

REPORT INFORMATION
  Report Type: Spontaneous
  Country: GB (occurrence: GB)
  Receive Date: 20211014
  Receipt Date: 20211228
  Transmission Date: 20220303
  Serious: Yes (Other)
  Sender: FDA-Public Use
  Company Number: GB-002147023-NVSC2021GB215824

PATIENT
  Age: 47 Year

DRUGS (3)
  1. RITUXIMAB [Suspect]
     Active Substance: RITUXIMAB
     Dosage: UNK
  2. KYMRIAH [Suspect]
     Active Substance: TISAGENLECLEUCEL
     Indication: Diffuse large B-cell lymphoma stage II
     Dosage: UNK, SINGLE
     Route: 042
  3. KYMRIAH [Suspect]
     Active Substance: TISAGENLECLEUCEL
     Dosage: UNK, SINGLE
     Route: 042

REACTIONS (4)
  - Cytokine release syndrome [Unknown]
  - Hypogammaglobulinaemia [Not Recovered/Not Resolved]
  - Immune effector cell-associated neurotoxicity syndrome [Unknown]
  - Urosepsis [Unknown]
